FAERS Safety Report 9022509 (Version 1)
Quarter: 2013Q1

REPORT INFORMATION
  Report Type: Spontaneous
  Country: FR (occurrence: FR)
  Receive Date: 20130118
  Receipt Date: 20130118
  Transmission Date: 20140127
  Serious: Yes (Hospitalization, Other)
  Sender: FDA-Public Use
  Company Number: FR-PFIZER INC-2013014738

PATIENT
  Age: 57 Year
  Sex: Female

DRUGS (5)
  1. CORDARONE [Suspect]
     Indication: ARRHYTHMIA
     Dosage: 200 MG, DAILY
     Route: 048
     Dates: start: 20121015, end: 20121025
  2. TRIFLUCAN [Suspect]
     Indication: PROPHYLAXIS
     Dosage: 800 MG, DAILY
     Route: 042
     Dates: start: 20121019, end: 20121025
  3. CRESTOR [Suspect]
     Dosage: 20 MG, DAILY
     Route: 048
     Dates: start: 20121017, end: 20121025
  4. CUBICIN [Concomitant]
     Indication: ENDOCARDITIS
     Dosage: UNK
     Dates: start: 20121020, end: 20121024
  5. CARDENSIEL [Concomitant]
     Indication: TACHYCARDIA
     Dosage: UNK
     Dates: start: 20121024, end: 20121025

REACTIONS (3)
  - Hepatitis fulminant [Recovered/Resolved]
  - Shock [Recovered/Resolved]
  - Blood creatine phosphokinase increased [Unknown]
